FAERS Safety Report 17845736 (Version 1)
Quarter: 2020Q2

REPORT INFORMATION
  Report Type: Spontaneous
  Country: US (occurrence: US)
  Receive Date: 20200601
  Receipt Date: 20200601
  Transmission Date: 20200714
  Serious: No
  Sender: FDA-Public Use
  Company Number: US-KYOWAKIRIN-2020BKK008408

PATIENT

DRUGS (4)
  1. NOURIANZ [Suspect]
     Active Substance: ISTRADEFYLLINE
     Indication: PARKINSON^S DISEASE
  2. NOURIANZ [Suspect]
     Active Substance: ISTRADEFYLLINE
     Indication: ORTHOSTATIC HYPOTENSION
     Dosage: 20 MG, ONCE A DAY
     Route: 048
     Dates: start: 20200424, end: 2020
  3. NOURIANZ [Suspect]
     Active Substance: ISTRADEFYLLINE
     Indication: MIGRAINE WITHOUT AURA
  4. NOURIANZ [Suspect]
     Active Substance: ISTRADEFYLLINE
     Indication: AUTONOMIC NERVOUS SYSTEM IMBALANCE

REACTIONS (1)
  - Drug ineffective for unapproved indication [Recovered/Resolved]

NARRATIVE: CASE EVENT DATE: 20200424
